FAERS Safety Report 25662634 (Version 1)
Quarter: 2025Q3

REPORT INFORMATION
  Report Type: Spontaneous
  Country: JP (occurrence: JP)
  Receive Date: 20250811
  Receipt Date: 20250811
  Transmission Date: 20251021
  Serious: Yes (Death, Other)
  Sender: BRISTOL-MYERS SQUIBB COMPANY
  Company Number: JP-ONO-2025JP013996

PATIENT
  Age: 7 Decade
  Sex: Male

DRUGS (3)
  1. OPDIVO [Suspect]
     Active Substance: NIVOLUMAB
     Indication: Oesophageal carcinoma
     Dosage: 480 MG, Q4W
     Route: 041
     Dates: start: 20250328, end: 20250425
  2. FLUOROURACIL [Concomitant]
     Active Substance: FLUOROURACIL
     Indication: Oesophageal carcinoma
     Dates: start: 20250328
  3. CISPLATIN [Concomitant]
     Active Substance: CISPLATIN
     Indication: Oesophageal carcinoma
     Dates: start: 20250328

REACTIONS (3)
  - Pneumonia [Fatal]
  - Rash [Fatal]
  - Infection [Unknown]

NARRATIVE: CASE EVENT DATE: 20250522
